FAERS Safety Report 16697059 (Version 9)
Quarter: 2023Q2

REPORT INFORMATION
  Report Type: Spontaneous
  Country: US (occurrence: US)
  Receive Date: 20190813
  Receipt Date: 20230606
  Transmission Date: 20230721
  Serious: Yes (Other)
  Sender: FDA-Public Use
  Company Number: US-PFIZER INC-2019225604

PATIENT
  Age: 66 Year
  Sex: Male
  Weight: 88.889 kg

DRUGS (9)
  1. BOSULIF [Suspect]
     Active Substance: BOSUTINIB MONOHYDRATE
     Indication: Chronic myeloid leukaemia
     Dosage: 200 MG, DAILY
     Route: 048
  2. BOSULIF [Suspect]
     Active Substance: BOSUTINIB MONOHYDRATE
     Dosage: 100 MG, 2X/DAY
     Route: 048
  3. BOSULIF [Suspect]
     Active Substance: BOSUTINIB MONOHYDRATE
     Dosage: 100 MG, DAILY
  4. AMLODIPINE [Concomitant]
     Active Substance: AMLODIPINE BESYLATE
     Dosage: 10 MG, DAILY
  5. PROZAC [Concomitant]
     Active Substance: FLUOXETINE HYDROCHLORIDE
     Indication: Depression
     Dosage: 20 MG, DAILY
  6. PRAVASTATIN [Concomitant]
     Active Substance: PRAVASTATIN
     Dosage: 80 MG, DAILY
  7. ALLOPURINOL [Concomitant]
     Active Substance: ALLOPURINOL
     Dosage: 300 MG, UNK
  8. METOPROLOL [Concomitant]
     Active Substance: METOPROLOL
     Dosage: 50 MG, UNK
  9. METFORMIN [Concomitant]
     Active Substance: METFORMIN HYDROCHLORIDE
     Dosage: 500 MG, UNK

REACTIONS (8)
  - Pneumonia [Recovering/Resolving]
  - Nasopharyngitis [Unknown]
  - Anxiety [Not Recovered/Not Resolved]
  - Nervousness [Not Recovered/Not Resolved]
  - Headache [Recovered/Resolved]
  - Psychomotor hyperactivity [Unknown]
  - Abdominal discomfort [Unknown]
  - Product dose omission issue [Unknown]
